FAERS Safety Report 9524255 (Version 1)
Quarter: 2013Q3

REPORT INFORMATION
  Report Type: Spontaneous
  Country: US (occurrence: US)
  Receive Date: 20130916
  Receipt Date: 20130916
  Transmission Date: 20140515
  Serious: No
  Sender: FDA-Public Use
  Company Number: US-BAYER-2013-111325

PATIENT
  Age: 70 Year
  Sex: Female

DRUGS (2)
  1. MIRENA [Suspect]
     Indication: UTERINE LEIOMYOMA
  2. MIRENA [Suspect]
     Indication: PROPHYLAXIS

REACTIONS (2)
  - Procedural pain [None]
  - Off label use [None]
